FAERS Safety Report 19443849 (Version 1)
Quarter: 2021Q2

REPORT INFORMATION
  Report Type: Report from Study
  Country: ES (occurrence: ES)
  Receive Date: 20210621
  Receipt Date: 20210621
  Transmission Date: 20210717
  Serious: Yes (Death, Other)
  Sender: FDA-Public Use
  Company Number: ES-ROCHE-2839150

PATIENT
  Age: 55 Year
  Sex: Female
  Weight: 83.5 kg

DRUGS (16)
  1. ATEZOLIZUMAB. [Suspect]
     Active Substance: ATEZOLIZUMAB
     Indication: METASTATIC NEOPLASM
     Dosage: ON 22/OCT/2019, THE PATIENT RECEIVED MOST RECENT DOSE 1200 MG PRIOR TO AE.
     Route: 042
     Dates: start: 20191002
  2. PARACETAMOL [Concomitant]
     Active Substance: ACETAMINOPHEN
     Indication: CHILLS
     Dates: start: 20191002, end: 20191002
  3. PARACETAMOL [Concomitant]
     Active Substance: ACETAMINOPHEN
     Dates: start: 20191022, end: 20191022
  4. ENANTYUM [Concomitant]
     Active Substance: DEXKETOPROFEN TROMETAMOL
     Indication: PYREXIA
     Dates: start: 20191003, end: 20191003
  5. RANITIDINE. [Concomitant]
     Active Substance: RANITIDINE
     Dates: start: 20191022, end: 20191022
  6. EUTIROX [Concomitant]
     Active Substance: LEVOTHYROXINE SODIUM
     Indication: HYPOTHYROIDISM
     Dates: start: 1992
  7. DEXCHLORPHENIRAMINE [Concomitant]
     Active Substance: DEXCHLORPHENIRAMINE
     Dates: start: 20191002, end: 20191002
  8. SIMVASTATINE [Concomitant]
     Active Substance: SIMVASTATIN
     Indication: DYSLIPIDAEMIA
     Dates: start: 2014
  9. RANITIDINE. [Concomitant]
     Active Substance: RANITIDINE
     Indication: PREMEDICATION
     Dates: start: 20191002, end: 20191002
  10. TORASEMIDE [Concomitant]
     Active Substance: TORSEMIDE
     Dates: start: 201905
  11. RO6874281 (FAP IL2V MAB) [Suspect]
     Active Substance: SIMLUKAFUSP ALFA
     Indication: METASTATIC NEOPLASM
     Dosage: ON 22/OCT/2019, THE PATIENT RECEIVED MOST RECENT DOSE 10 MG PRIOR TO AE.
     Route: 042
     Dates: start: 20191002
  12. DEXCHLORPHENIRAMINE [Concomitant]
     Active Substance: DEXCHLORPHENIRAMINE
     Dates: start: 20191022, end: 20191022
  13. ONDANSETRON [Concomitant]
     Active Substance: ONDANSETRON
     Indication: PREMEDICATION
     Dates: start: 20191002, end: 20191002
  14. LOSARTAN. [Concomitant]
     Active Substance: LOSARTAN
     Indication: HYPERTENSION
     Dates: start: 2014
  15. ONDANSETRON [Concomitant]
     Active Substance: ONDANSETRON
     Dates: start: 20191022, end: 20191022
  16. MAGNOGENE [Concomitant]
     Indication: PROPHYLAXIS
     Dates: start: 201908

REACTIONS (2)
  - Drug-induced liver injury [Recovered/Resolved]
  - Liver function test abnormal [Recovered/Resolved]

NARRATIVE: CASE EVENT DATE: 20191023
